FAERS Safety Report 13596629 (Version 1)
Quarter: 2017Q2

REPORT INFORMATION
  Report Type: Spontaneous
  Country: US (occurrence: US)
  Receive Date: 20170530
  Receipt Date: 20170530
  Transmission Date: 20170830
  Serious: Yes (Other)
  Sender: FDA-Public Use
  Company Number: None

PATIENT
  Sex: Female

DRUGS (1)
  1. STIVARGA [Suspect]
     Active Substance: REGORAFENIB
     Indication: RECTAL CANCER
     Dosage: 80 MG DAILY X 3 WEEKS, THEN 1 WEEK OFF PO
     Route: 048
     Dates: start: 20170407

REACTIONS (2)
  - Abdominal pain upper [None]
  - Muscle spasms [None]
